FAERS Safety Report 5893808-7 (Version None)
Quarter: 2008Q3

REPORT INFORMATION
  Report Type: 
  Country: None (occurrence: None)
  Receive Date: 20080923
  Receipt Date: 20080416
  Transmission Date: 20090109
  Serious: No
  Sender: FDA-Public Use
  Company Number: US-ASTRAZENECA-2007UW24472

PATIENT
  Age: 729 Month
  Sex: Female
  Weight: 65.8 kg

DRUGS (6)
  1. SEROQUEL [Suspect]
     Indication: BIPOLAR DISORDER
     Dosage: 100 MG IN AM AND 200 MG IN PM
     Route: 048
  2. LEVOTHRYOXINE [Concomitant]
  3. ATENOLOL [Concomitant]
  4. ZOCOR [Concomitant]
  5. HYDROCHLOROTHIAZIDE [Concomitant]
  6. GABAPENTIN [Concomitant]

REACTIONS (8)
  - FEELING ABNORMAL [None]
  - HYPOAESTHESIA [None]
  - HYPOTENSION [None]
  - NEUROLEPTIC MALIGNANT SYNDROME [None]
  - SPEECH DISORDER [None]
  - SWOLLEN TONGUE [None]
  - TARDIVE DYSKINESIA [None]
  - WEIGHT INCREASED [None]
